FAERS Safety Report 6888718-2 (Version None)
Quarter: 2010Q3

REPORT INFORMATION
  Report Type: 
  Country: None (occurrence: None)
  Receive Date: 20100730
  Receipt Date: 20100722
  Transmission Date: 20110219
  Serious: Yes (Other)
  Sender: FDA-Public Use
  Company Number: CA-AMGEN-QUU426715

PATIENT
  Sex: Female
  Weight: 77.2 kg

DRUGS (4)
  1. ENBREL [Suspect]
     Indication: RHEUMATOID ARTHRITIS
     Dates: start: 20090301, end: 20100601
  2. CELEBREX [Concomitant]
  3. PLAQUENIL [Concomitant]
  4. SYNTHROID [Concomitant]

REACTIONS (3)
  - BREAST CANCER [None]
  - INFECTION [None]
  - PAIN [None]
